FAERS Safety Report 6448450-6 (Version None)
Quarter: 2009Q4

REPORT INFORMATION
  Report Type: 
  Country: None (occurrence: None)
  Receive Date: 20091120
  Receipt Date: 20091117
  Transmission Date: 20100525
  Serious: Yes (Death, Life-Threatening, Hospitalization)
  Sender: FDA-Public Use
  Company Number: FR-ASTRAZENECA-2009SE26916

PATIENT
  Age: 24118 Day
  Sex: Male

DRUGS (7)
  1. SYMBICORT [Suspect]
     Dosage: 160/4.5 UG ONE INHALATION DAILY
     Route: 055
     Dates: start: 20080103, end: 20080107
  2. PREVISCAN [Suspect]
     Route: 048
     Dates: start: 20080102, end: 20080103
  3. KARDEGIC [Suspect]
     Route: 048
     Dates: start: 20080104, end: 20080106
  4. TAHOR [Suspect]
     Route: 048
     Dates: start: 20080103, end: 20080106
  5. CONTRAMAL [Suspect]
     Route: 048
     Dates: start: 20080103, end: 20080106
  6. LASIX [Suspect]
     Route: 048
     Dates: start: 20080104, end: 20080107
  7. CORDARONE [Suspect]
     Route: 048
     Dates: start: 20080106, end: 20080107

REACTIONS (2)
  - ANAEMIA [None]
  - HAEMATOMA [None]
